FAERS Safety Report 10315012 (Version 2)
Quarter: 2014Q3

REPORT INFORMATION
  Report Type: Report from Study
  Country: US (occurrence: US)
  Receive Date: 20140718
  Receipt Date: 20140917
  Transmission Date: 20150326
  Serious: Yes (Other)
  Sender: FDA-Public Use
  Company Number: US-ABBVIE-14P-163-1259815-00

PATIENT
  Age: 75 Year
  Sex: Male
  Weight: 111.68 kg

DRUGS (6)
  1. LEVOTHYROXINE [Concomitant]
     Active Substance: LEVOTHYROXINE
     Indication: THYROID DISORDER
  2. SIMVASTATIN. [Concomitant]
     Active Substance: SIMVASTATIN
     Indication: BLOOD CHOLESTEROL
  3. LUPRON DEPOT [Suspect]
     Active Substance: LEUPROLIDE ACETATE
     Indication: PROSTATE CANCER
  4. LISINOPRIL. [Concomitant]
     Active Substance: LISINOPRIL
     Indication: HYPERTENSION
     Dosage: 20/25
  5. UNKNOWN BLOOD PRESSURE MEDICATION [Concomitant]
     Active Substance: UNSPECIFIED INGREDIENT
     Indication: BLOOD PRESSURE ABNORMAL
  6. FLOMAX [Concomitant]
     Active Substance: TAMSULOSIN HYDROCHLORIDE
     Indication: PRODUCT USED FOR UNKNOWN INDICATION

REACTIONS (2)
  - Brachytherapy [Unknown]
  - Blood triglycerides increased [Unknown]

NARRATIVE: CASE EVENT DATE: 20130829
